FAERS Safety Report 9543884 (Version 1)
Quarter: 2013Q3

REPORT INFORMATION
  Report Type: Spontaneous
  Country: FR (occurrence: FR)
  Receive Date: 20130923
  Receipt Date: 20130923
  Transmission Date: 20140515
  Serious: Yes (Life-Threatening, Other)
  Sender: FDA-Public Use
  Company Number: FR-GLAXOSMITHKLINE-B0924400A

PATIENT
  Age: 35 Year
  Sex: Male

DRUGS (23)
  1. ALKERAN [Suspect]
     Indication: PRODUCT USED FOR UNKNOWN INDICATION
     Dosage: 280MG PER DAY
     Route: 042
     Dates: start: 20130725, end: 20130725
  2. BUSULFAN [Suspect]
     Indication: PRODUCT USED FOR UNKNOWN INDICATION
     Dosage: .8MGK FOUR TIMES PER DAY
     Route: 042
     Dates: start: 20130720, end: 20130723
  3. ARACYTINE [Suspect]
     Indication: PRODUCT USED FOR UNKNOWN INDICATION
     Route: 065
     Dates: start: 20130723
  4. GARDENAL [Suspect]
     Indication: PRODUCT USED FOR UNKNOWN INDICATION
     Route: 042
     Dates: start: 20130721, end: 20130723
  5. EMEND [Concomitant]
  6. ZOPHREN [Concomitant]
  7. GENTAMICIN [Concomitant]
  8. GELOX [Concomitant]
  9. MYCOSTATINE [Concomitant]
  10. MOPRAL [Concomitant]
  11. TOBRADEX [Concomitant]
  12. IDARAC [Concomitant]
  13. PENTACARINAT [Concomitant]
  14. HEPARIN [Concomitant]
  15. TRIFLUCAN [Concomitant]
  16. ZOVIRAX [Concomitant]
  17. TAZOCILLINE [Concomitant]
  18. AMIKLIN [Concomitant]
  19. PERFALGAN [Concomitant]
  20. PRIMPERAN [Concomitant]
  21. VANCOMYCIN [Concomitant]
  22. ZOPHREN [Concomitant]
  23. COLISTIN [Concomitant]

REACTIONS (3)
  - Hepatitis acute [Recovered/Resolved]
  - Renal failure acute [Unknown]
  - Bone marrow failure [Recovered/Resolved]
